FAERS Safety Report 7679715-8 (Version None)
Quarter: 2011Q3

REPORT INFORMATION
  Report Type: 
  Country: None (occurrence: None)
  Receive Date: 20110809
  Receipt Date: 20110801
  Transmission Date: 20111222
  Serious: Yes (Hospitalization, Other)
  Sender: FDA-Public Use
  Company Number: LTI2011A00221

PATIENT
  Age: 37 Year
  Sex: Female

DRUGS (2)
  1. PIOGLITAZONE HYDROCHLORIDE/METFORMIN HYDROCHLORIDE [Suspect]
     Indication: TYPE 2 DIABETES MELLITUS
     Dosage: 2 TAB. (1 TAB.,,2 IN 1 D) ORAL
     Route: 048
     Dates: start: 20100101
  2. ACTOS [Suspect]
     Indication: TYPE 2 DIABETES MELLITUS
     Dosage: 15 MG (15 MG,1 IN 1 D) ORAL
     Route: 048
     Dates: start: 20110101, end: 20110601

REACTIONS (7)
  - WEIGHT INCREASED [None]
  - VISUAL IMPAIRMENT [None]
  - BLOOD URINE PRESENT [None]
  - HEADACHE [None]
  - INSOMNIA [None]
  - ABDOMINAL DISTENSION [None]
  - EYELID OEDEMA [None]
